FAERS Safety Report 9689955 (Version 1)
Quarter: 2013Q4

REPORT INFORMATION
  Report Type: Spontaneous
  Country: JP (occurrence: JP)
  Receive Date: 20131115
  Receipt Date: 20131115
  Transmission Date: 20140711
  Serious: Yes (Life-Threatening, Hospitalization)
  Sender: FDA-Public Use
  Company Number: JP-ROCHE-1300863

PATIENT
  Age: 74 Year
  Sex: Female
  Weight: 40 kg

DRUGS (4)
  1. ACTEMRA [Suspect]
     Indication: RHEUMATOID ARTHRITIS
     Dosage: DOSAGE IS UNCERTAIN.
     Route: 041
     Dates: start: 20130911
  2. ISCOTIN [Suspect]
     Indication: PROPHYLAXIS
     Dosage: DOSAGE IS UNCERTAIN.
     Route: 048
     Dates: start: 20130909, end: 20130918
  3. PREDNISOLONE [Concomitant]
     Route: 065
     Dates: start: 20120528
  4. TRAMCET [Concomitant]
     Indication: RHEUMATOID ARTHRITIS
     Dosage: DOSAGE IS UNCERTAIN.
     Route: 048
     Dates: start: 20130909, end: 20130914

REACTIONS (3)
  - Disseminated intravascular coagulation [Recovered/Resolved]
  - Bacterial infection [Recovering/Resolving]
  - Complement factor decreased [Unknown]
